FAERS Safety Report 20461488 (Version 2)
Quarter: 2022Q1

REPORT INFORMATION
  Report Type: Spontaneous
  Country: US (occurrence: US)
  Receive Date: 20220211
  Receipt Date: 20220218
  Transmission Date: 20220423
  Serious: No
  Sender: FDA-Public Use
  Company Number: US-PFIZER INC-202200222332

PATIENT
  Age: 76 Year
  Sex: Female

DRUGS (1)
  1. PAXLOVID [Suspect]
     Active Substance: NIRMATRELVIR\RITONAVIR
     Dosage: UNK

REACTIONS (6)
  - Intentional product misuse [Unknown]
  - Product size issue [Unknown]
  - Vomiting [Unknown]
  - Myalgia [Unknown]
  - Dysgeusia [Unknown]
  - Illness [Unknown]
